FAERS Safety Report 13051536 (Version 1)
Quarter: 2016Q4

REPORT INFORMATION
  Report Type: Spontaneous
  Country: US (occurrence: US)
  Receive Date: 20161221
  Receipt Date: 20161221
  Transmission Date: 20170207
  Serious: No
  Sender: FDA-Public Use
  Company Number: US-NOVOPROD-484232

PATIENT
  Age: 73 Year
  Sex: Female

DRUGS (3)
  1. LEVEMIR [Suspect]
     Active Substance: INSULIN DETEMIR
     Dosage: 10 U QD
     Route: 058
     Dates: start: 201510
  2. LEVEMIR [Suspect]
     Active Substance: INSULIN DETEMIR
     Indication: TYPE 1 DIABETES MELLITUS
     Dosage: 10 U QD
     Route: 058
     Dates: start: 201502
  3. LEVEMIR [Suspect]
     Active Substance: INSULIN DETEMIR
     Dosage: UNK

REACTIONS (5)
  - Device leakage [Recovered/Resolved]
  - Drug hypersensitivity [Recovered/Resolved]
  - Product odour abnormal [Recovered/Resolved]
  - Blood glucose increased [Recovered/Resolved]
  - Insomnia [Recovered/Resolved]
